FAERS Safety Report 20098743 (Version 2)
Quarter: 2022Q1

REPORT INFORMATION
  Report Type: Spontaneous
  Country: JP (occurrence: JP)
  Receive Date: 20211122
  Receipt Date: 20220105
  Transmission Date: 20220424
  Serious: Yes (Death, Life-Threatening)
  Sender: FDA-Public Use
  Company Number: JP-PFIZER INC-202101577225

PATIENT
  Age: 75 Year
  Sex: Female
  Weight: 42.8 kg

DRUGS (7)
  1. VYNDAQEL [Suspect]
     Active Substance: TAFAMIDIS MEGLUMINE
     Indication: Familial amyloidosis
     Dosage: 80 MG
     Route: 048
     Dates: start: 20210917, end: 20211107
  2. SPIRONOLACTONE [Concomitant]
     Active Substance: SPIRONOLACTONE
     Dosage: 25 MG
     Dates: end: 20211107
  3. VONOPRAZAN FUMARATE [Concomitant]
     Active Substance: VONOPRAZAN FUMARATE
     Dosage: 10 MG
     Dates: end: 20211107
  4. SAMSCA [Concomitant]
     Active Substance: TOLVAPTAN
     Dosage: 15 MG
     Dates: end: 20211107
  5. XARELTO [Concomitant]
     Active Substance: RIVAROXABAN
     Dosage: 10 MG
     Dates: end: 20211107
  6. FEBUXOSTAT [Concomitant]
     Active Substance: FEBUXOSTAT
     Dosage: 20 MG
     Dates: end: 20211107
  7. DAPRODUSTAT [Concomitant]
     Active Substance: DAPRODUSTAT
     Dosage: 4 MG
     Dates: end: 20211107

REACTIONS (1)
  - Cardiac failure [Fatal]

NARRATIVE: CASE EVENT DATE: 20211110
